FAERS Safety Report 8782408 (Version 1)
Quarter: 2012Q4

REPORT INFORMATION
  Report Type: 
  Country: US (occurrence: US)
  Receive Date: 20120913
  Receipt Date: 20120913
  Transmission Date: 20130627
  Serious: Yes (Other)
  Sender: FDA-Public Use
  Company Number: CHPA2012US019508

PATIENT
  Age: 71 Year
  Sex: Female

DRUGS (1)
  1. MAALOX ANTACID WITH ANTI-GAS [Suspect]
     Indication: DYSPEPSIA
     Dosage: 1 TSP, PRN
     Route: 048

REACTIONS (6)
  - Coeliac disease [Not Recovered/Not Resolved]
  - Ligament sprain [Not Recovered/Not Resolved]
  - Fall [Not Recovered/Not Resolved]
  - Oedema peripheral [Not Recovered/Not Resolved]
  - Underdose [Unknown]
  - Expired drug administered [Unknown]
